FAERS Safety Report 14738022 (Version 1)
Quarter: 2018Q2

REPORT INFORMATION
  Report Type: Spontaneous
  Country: US (occurrence: US)
  Receive Date: 20180409
  Receipt Date: 20180409
  Transmission Date: 20180711
  Serious: Yes (Other)
  Sender: FDA-Public Use
  Company Number: US-PFIZER INC-2018139526

PATIENT
  Age: 39 Year
  Sex: Female

DRUGS (2)
  1. CORTEF [Suspect]
     Active Substance: HYDROCORTISONE
     Dosage: 10 MG, UNK
  2. CORTEF [Suspect]
     Active Substance: HYDROCORTISONE
     Dosage: 5 MG, UNK

REACTIONS (3)
  - Adrenocortical insufficiency acute [Unknown]
  - Steroid withdrawal syndrome [Unknown]
  - Pituitary-dependent Cushing^s syndrome [Not Recovered/Not Resolved]
